FAERS Safety Report 14558965 (Version 1)
Quarter: 2018Q1

REPORT INFORMATION
  Report Type: Spontaneous
  Country: ES (occurrence: ES)
  Receive Date: 20180221
  Receipt Date: 20180221
  Transmission Date: 20180509
  Serious: Yes (Hospitalization)
  Sender: FDA-Public Use
  Company Number: ES-TEVA-2018-ES-857783

PATIENT
  Age: 2 Year
  Sex: Female

DRUGS (4)
  1. CICLOSPORIN [Suspect]
     Active Substance: CYCLOSPORINE
     Dosage: SP
     Route: 042
     Dates: end: 20161014
  2. MICOFENOLATO [Suspect]
     Active Substance: MYCOPHENOLATE MOFETIL
     Dosage: SP
     Route: 048
     Dates: start: 20160720, end: 20160930
  3. METILPREDNISOLONA [Concomitant]
     Active Substance: METHYLPREDNISOLONE
     Dosage: 2MG/KG/DIA
     Route: 048
     Dates: start: 20160715, end: 20171020
  4. METOTREXATE [Concomitant]
     Active Substance: METHOTREXATE SODIUM
     Dosage: SP
     Route: 065

REACTIONS (1)
  - Non-Hodgkin^s lymphoma [Not Recovered/Not Resolved]

NARRATIVE: CASE EVENT DATE: 20160923
